FAERS Safety Report 24000939 (Version 1)
Quarter: 2024Q2

REPORT INFORMATION
  Report Type: Spontaneous
  Country: RU (occurrence: None)
  Receive Date: 20240621
  Receipt Date: 20240621
  Transmission Date: 20240716
  Serious: Yes (Other)
  Sender: FDA-Public Use
  Company Number: 2024A140711

PATIENT
  Age: 45 Year
  Sex: Male
  Weight: 110 kg

DRUGS (4)
  1. METOPROLOL SUCCINATE [Suspect]
     Active Substance: METOPROLOL SUCCINATE
     Route: 048
  2. METOPROLOL SUCCINATE [Suspect]
     Active Substance: METOPROLOL SUCCINATE
     Route: 048
  3. CRESTOR [Suspect]
     Active Substance: ROSUVASTATIN CALCIUM
     Indication: Dyslipidaemia
     Route: 048
  4. UPERIO [Concomitant]

REACTIONS (5)
  - Glomerular filtration rate decreased [Unknown]
  - Ventricular arrhythmia [Unknown]
  - Cardiac failure chronic [Unknown]
  - Tachycardia [Unknown]
  - Off label use [Unknown]
